FAERS Safety Report 5826194-9 (Version None)
Quarter: 2008Q3

REPORT INFORMATION
  Report Type: 
  Country: None (occurrence: None)
  Receive Date: 20080729
  Receipt Date: 20080718
  Transmission Date: 20090109
  Serious: Yes (Other)
  Sender: FDA-Public Use
  Company Number: FR-PFIZER INC-2008060721

PATIENT
  Sex: Female

DRUGS (8)
  1. TAHOR [Interacting]
     Route: 048
     Dates: start: 20080530, end: 20080624
  2. PROGRAF [Interacting]
     Dosage: DAILY DOSE:5MG-FREQ:EVERY DAY
     Route: 048
  3. PLAVIX [Suspect]
     Dosage: TEXT:EVERY DAY TDD:1 DF
     Route: 048
  4. MYCOPHENOLATE MOFETIL [Concomitant]
  5. PERINDOPRIL ERBUMINE [Concomitant]
  6. ACETYLSALICYLATE LYSINE [Concomitant]
  7. ACEBUTOLOL HYDROCHLORIDE [Concomitant]
  8. POTASSIUM CHLORIDE [Concomitant]

REACTIONS (1)
  - UNDERDOSE [None]
